FAERS Safety Report 4738175-7 (Version None)
Quarter: 2005Q3

REPORT INFORMATION
  Report Type: 
  Country: None (occurrence: None)
  Receive Date: 20050808
  Receipt Date: 20050808
  Transmission Date: 20060218
  Serious: Yes (Disabling)
  Sender: FDA-Public Use
  Company Number: None

PATIENT
  Age: 47 Year
  Sex: Male

DRUGS (2)
  1. KETEK [Suspect]
     Indication: PNEUMONIA
     Dosage: TWO TABLETS DAILY
     Dates: start: 20050627, end: 20050706
  2. TUSSIONEX [Concomitant]

REACTIONS (1)
  - HEADACHE [None]
